FAERS Safety Report 9046537 (Version 1)
Quarter: 2013Q1

REPORT INFORMATION
  Report Type: Spontaneous
  Country: US (occurrence: None)
  Receive Date: 20130128
  Receipt Date: 20130128
  Transmission Date: 20140127
  Serious: Yes (Other)
  Sender: FDA-Public Use
  Company Number: None

PATIENT
  Age: 49 Year
  Sex: Female
  Weight: 97.07 kg

DRUGS (2)
  1. SUDAFED [Suspect]
     Indication: SINUS CONGESTION
     Route: 048
     Dates: start: 20130115, end: 20130119
  2. MUCINEX D [Suspect]
     Indication: RESPIRATORY TRACT CONGESTION
     Route: 048
     Dates: start: 20130115, end: 20130119

REACTIONS (8)
  - Insomnia [None]
  - Feeling jittery [None]
  - Dyspnoea [None]
  - Conversion disorder [None]
  - Crying [None]
  - Panic attack [None]
  - Apparent death [None]
  - Hypersomnia [None]
